FAERS Safety Report 15235521 (Version 3)
Quarter: 2018Q3

REPORT INFORMATION
  Report Type: Report from Study
  Country: US (occurrence: US)
  Receive Date: 20180803
  Receipt Date: 20180927
  Transmission Date: 20181010
  Serious: Yes (Other)
  Sender: FDA-Public Use
  Company Number: US-REGENERON PHARMACEUTICALS, INC.-2018-31432

PATIENT

DRUGS (3)
  1. EYLEA [Suspect]
     Active Substance: AFLIBERCEPT
     Dosage: UNK, EVERY WEEK, BILATERAL
     Dates: start: 20180826
  2. EYLEA [Suspect]
     Active Substance: AFLIBERCEPT
     Indication: DIABETIC RETINOPATHY
     Dosage: UNK EVERY WEEK, BILATERAL
     Dates: end: 20180820
  3. EYLEA [Suspect]
     Active Substance: AFLIBERCEPT
     Dosage: UNK EVERY WEEK, BILATERAL, LAST DOSE PRIOR TO EVENTS ONSET
     Dates: start: 20180716, end: 20180716

REACTIONS (4)
  - Eye haemorrhage [Recovered/Resolved]
  - Cataract [Not Recovered/Not Resolved]
  - Eye swelling [Unknown]
  - Visual impairment [Not Recovered/Not Resolved]
